FAERS Safety Report 24334198 (Version 1)
Quarter: 2024Q3

REPORT INFORMATION
  Report Type: Spontaneous
  Country: EG (occurrence: EG)
  Receive Date: 20240918
  Receipt Date: 20240918
  Transmission Date: 20241017
  Serious: Yes (Other)
  Sender: PFIZER
  Company Number: EG-PFIZER INC-PV202400121203

PATIENT
  Age: 27 Year
  Sex: Female

DRUGS (4)
  1. VFEND [Suspect]
     Active Substance: VORICONAZOLE
     Indication: Mucosal inflammation
     Dosage: 200 MG (ON 200 ML NORMAL SALINE OVER 2 HRS)
     Route: 042
  2. VFEND [Suspect]
     Active Substance: VORICONAZOLE
     Indication: Fungal infection
  3. MEROPENEM [Concomitant]
     Active Substance: MEROPENEM
     Route: 042
  4. SODIUM CHLORIDE [Concomitant]
     Active Substance: SODIUM CHLORIDE
     Indication: Vehicle solution use
     Dosage: 200 ML (OVER 2 HRS)
     Route: 042

REACTIONS (3)
  - Pruritus [Recovered/Resolved]
  - Periostitis [Recovered/Resolved]
  - Vasculitis [Recovered/Resolved]
